FAERS Safety Report 15979340 (Version 2)
Quarter: 2019Q2

REPORT INFORMATION
  Report Type: Report from Study
  Country: KR (occurrence: KR)
  Receive Date: 20190219
  Receipt Date: 20190502
  Transmission Date: 20190711
  Serious: Yes (Hospitalization)
  Sender: FDA-Public Use
  Company Number: KR-GLAXOSMITHKLINE-KR2019GSK024605

PATIENT
  Age: 71 Year
  Sex: Male
  Weight: 60 kg

DRUGS (17)
  1. AMODIPIN TABLET [Concomitant]
     Indication: HYPERTENSION
     Dosage: 5 MG, BID
     Route: 048
     Dates: start: 20090608
  2. TORSEM TABLET [Concomitant]
     Indication: HYPERTENSION
     Dosage: 2.5 MG, QD
     Route: 048
     Dates: start: 20160804
  3. UMECLIDINIUM BR+VILANTEROL TRIFENATATE [Suspect]
     Active Substance: UMECLIDINIUM BROMIDE\VILANTEROL TRIFENATATE
     Indication: CHRONIC OBSTRUCTIVE PULMONARY DISEASE
     Dosage: 62.5/25 MCG, QD
     Route: 055
     Dates: start: 20160804
  4. FEROBA-U [Concomitant]
     Indication: ANAEMIA PROPHYLAXIS
     Dosage: 256 MG, BID
     Route: 048
     Dates: start: 20150409
  5. CODAEWON TABLET [Concomitant]
     Indication: COUGH
     Dosage: 1 DF, TID(TABLET)
     Route: 048
     Dates: start: 20160804, end: 20160826
  6. DILATREND TABLET [Concomitant]
     Indication: HYPERTENSION
     Dosage: 25 MG, BID
     Route: 048
     Dates: start: 20160114
  7. TASNA TABLET [Concomitant]
     Indication: GASTRITIS PROPHYLAXIS
     Dosage: 500 MG, BID
     Route: 048
     Dates: start: 20160310
  8. HOKUNALIN PATCH [Concomitant]
     Indication: RESPIRATORY DISORDER PROPHYLAXIS
     Dosage: 2 MG, QD
     Route: 048
     Dates: start: 20160804
  9. CICIBON TABLET [Concomitant]
     Indication: MINERAL SUPPLEMENTATION
     Dosage: 500 MG, TID
     Route: 048
     Dates: start: 20160609
  10. SOLONDO TABLET [Concomitant]
     Indication: RESPIRATORY DISORDER PROPHYLAXIS
     Dosage: 5 MG, BID
     Route: 048
     Dates: start: 20160804
  11. APROVEL TABLET [Concomitant]
     Indication: HYPERTENSION
     Dosage: 300 MG, QD
     Route: 048
     Dates: start: 20160114
  12. CASUIT SUSPENSION [Concomitant]
     Indication: HYPERKALAEMIA
     Dosage: 5G/20ML, BID
     Route: 048
     Dates: start: 20160114
  13. HUMULIN N [Concomitant]
     Active Substance: INSULIN HUMAN
     Indication: DIABETES MELLITUS
     Dosage: 19U, QD
     Route: 048
     Dates: start: 20091123
  14. DICAMAX [Concomitant]
     Indication: VITAMIN SUPPLEMENTATION
     Dosage: 1250MG/1000UNIT, QD
     Route: 048
     Dates: start: 20110830
  15. ASIMA TABLET [Concomitant]
     Indication: CHRONIC OBSTRUCTIVE PULMONARY DISEASE
     Dosage: 400 MG, BID
     Route: 048
     Dates: start: 20160804, end: 20160826
  16. SIMVAST TABLET [Concomitant]
     Indication: CARDIOVASCULAR EVENT PROPHYLAXIS
     Dosage: 10 MG, QD
     Route: 048
     Dates: start: 20131017
  17. ERDOS CAPSULE [Concomitant]
     Indication: PRODUCTIVE COUGH
     Dosage: 300 MG, TID
     Route: 048
     Dates: start: 20160804, end: 20160826

REACTIONS (1)
  - Anaemia [Recovered/Resolved]

NARRATIVE: CASE EVENT DATE: 20171207
